FAERS Safety Report 18475137 (Version 15)
Quarter: 2025Q1

REPORT INFORMATION
  Report Type: Report from Study
  Country: CO (occurrence: CO)
  Receive Date: 20201106
  Receipt Date: 20250131
  Transmission Date: 20250408
  Serious: Yes (Life-Threatening, Hospitalization)
  Sender: NOVARTIS
  Company Number: NVSC2020CO267492

PATIENT
  Age: 2 Year
  Sex: Female
  Weight: 21 kg

DRUGS (21)
  1. ELTROMBOPAG OLAMINE [Suspect]
     Active Substance: ELTROMBOPAG OLAMINE
     Indication: Immune thrombocytopenia
     Dosage: 25 MG, QD
     Route: 048
     Dates: start: 202007, end: 20240725
  2. ELTROMBOPAG OLAMINE [Suspect]
     Active Substance: ELTROMBOPAG OLAMINE
     Dosage: 25 MG, QD
     Route: 048
     Dates: start: 20200729
  3. ELTROMBOPAG OLAMINE [Suspect]
     Active Substance: ELTROMBOPAG OLAMINE
     Route: 048
  4. ELTROMBOPAG OLAMINE [Suspect]
     Active Substance: ELTROMBOPAG OLAMINE
     Dosage: 25 MG, QD
     Route: 048
     Dates: start: 202008
  5. ELTROMBOPAG OLAMINE [Suspect]
     Active Substance: ELTROMBOPAG OLAMINE
     Dosage: 25 MG, QD (STOP DATE WAS 10 SEP)
     Route: 048
  6. ELTROMBOPAG OLAMINE [Suspect]
     Active Substance: ELTROMBOPAG OLAMINE
     Dosage: 25 MG, QD
     Route: 048
  7. ELTROMBOPAG OLAMINE [Suspect]
     Active Substance: ELTROMBOPAG OLAMINE
     Dosage: 25 MG, QD (DAILY EXCEPT WEDNESDAY AND FRIDAY)
     Route: 048
  8. ELTROMBOPAG OLAMINE [Suspect]
     Active Substance: ELTROMBOPAG OLAMINE
     Route: 048
  9. ELTROMBOPAG OLAMINE [Suspect]
     Active Substance: ELTROMBOPAG OLAMINE
     Route: 048
  10. ELTROMBOPAG OLAMINE [Suspect]
     Active Substance: ELTROMBOPAG OLAMINE
     Route: 048
  11. ELTROMBOPAG OLAMINE [Suspect]
     Active Substance: ELTROMBOPAG OLAMINE
     Route: 048
  12. ELTROMBOPAG OLAMINE [Suspect]
     Active Substance: ELTROMBOPAG OLAMINE
     Route: 048
     Dates: start: 20240725
  13. ELTROMBOPAG OLAMINE [Suspect]
     Active Substance: ELTROMBOPAG OLAMINE
     Route: 048
  14. ELTROMBOPAG OLAMINE [Suspect]
     Active Substance: ELTROMBOPAG OLAMINE
     Dosage: 25 MG, QD
     Route: 048
  15. Anemidox [Concomitant]
     Indication: Anaemia
     Dosage: 2 DOSAGE FORM, QD (8 MONTHS AGO)
     Route: 048
  16. Anemidox [Concomitant]
     Route: 065
     Dates: start: 2021
  17. MILLIPRED [Concomitant]
     Active Substance: PREDNISOLONE
     Indication: Immune thrombocytopenia
     Dosage: 5 MG, QD (8 MONTHS AGO)
     Route: 048
  18. MILLIPRED [Concomitant]
     Active Substance: PREDNISOLONE
     Route: 048
  19. MILLIPRED [Concomitant]
     Active Substance: PREDNISOLONE
     Dosage: 7 DOSAGE FORM, QD
     Route: 048
  20. MILLIPRED [Concomitant]
     Active Substance: PREDNISOLONE
     Route: 065
     Dates: start: 2022
  21. MILLIPRED [Concomitant]
     Active Substance: PREDNISOLONE
     Route: 065
     Dates: start: 2022

REACTIONS (15)
  - Platelet count decreased [Not Recovered/Not Resolved]
  - Contusion [Unknown]
  - Mouth haemorrhage [Unknown]
  - Petechiae [Not Recovered/Not Resolved]
  - Urinary tract infection [Unknown]
  - Drug ineffective [Unknown]
  - Illness [Unknown]
  - Productive cough [Unknown]
  - Influenza [Unknown]
  - Feeling abnormal [Unknown]
  - Platelet count increased [Unknown]
  - Dizziness [Unknown]
  - Cough [Unknown]
  - Product availability issue [Unknown]
  - Off label use [Unknown]

NARRATIVE: CASE EVENT DATE: 20200901
